FAERS Safety Report 7035532 (Version 14)
Quarter: 2018Q4

REPORT INFORMATION
  Report Type: Report from Study
  Country: JP (occurrence: JP)
  Receive Date: 20090629
  Receipt Date: 20181211
  Transmission Date: 20190205
  Serious: Yes (Hospitalization, Other)
  Sender: FDA-Public Use
  Company Number: PHHY2009JP12452

PATIENT
  Age: 74 Year
  Sex: Female

DRUGS (21)
  1. TASIGNA [Suspect]
     Active Substance: NILOTINIB
     Indication: CHRONIC MYELOID LEUKAEMIA
     Dosage: 200 MG, QD
     Route: 048
     Dates: start: 20090220, end: 20090305
  2. MYSLEE [Concomitant]
     Active Substance: ZOLPIDEM TARTRATE
     Indication: PRODUCT USED FOR UNKNOWN INDICATION
     Route: 065
     Dates: start: 20090220, end: 20090402
  3. BROTIZOLAM [Concomitant]
     Active Substance: BROTIZOLAM
     Indication: PRODUCT USED FOR UNKNOWN INDICATION
     Dosage: 0.25 MG, UNK
     Route: 048
     Dates: start: 20090403
  4. TASIGNA [Suspect]
     Active Substance: NILOTINIB
     Dosage: 400 MG, QD
     Route: 048
     Dates: start: 20090306, end: 20090311
  5. TASIGNA [Suspect]
     Active Substance: NILOTINIB
     Dosage: 200 MG, QD  THREE TIMES A WEEK
     Route: 048
     Dates: start: 20100723
  6. TASIGNA [Suspect]
     Active Substance: NILOTINIB
     Dosage: 200 MG, QD FIVE TIMES A WEEK
     Route: 048
     Dates: start: 20110509, end: 20110731
  7. TASIGNA [Suspect]
     Active Substance: NILOTINIB
     Dosage: 200 MG, QD FIVE TIMES A WEEK
     Route: 048
     Dates: start: 20110801, end: 20111023
  8. TASIGNA [Suspect]
     Active Substance: NILOTINIB
     Dosage: 200 MG, QD
     Route: 048
     Dates: start: 20090312, end: 20090507
  9. TASIGNA [Suspect]
     Active Substance: NILOTINIB
     Dosage: 200 MG, QD
     Route: 048
     Dates: start: 20090723, end: 20091009
  10. TASIGNA [Suspect]
     Active Substance: NILOTINIB
     Dosage: 200 MG, FIVE TIMES A WEEK
     Route: 048
     Dates: start: 20091010, end: 20091211
  11. TASIGNA [Suspect]
     Active Substance: NILOTINIB
     Dosage: 200 MG, QD FIVE TIMES A WEEK
     Route: 048
     Dates: start: 20101124, end: 20110319
  12. DIFLUCAN [Concomitant]
     Active Substance: FLUCONAZOLE
     Indication: PRODUCT USED FOR UNKNOWN INDICATION
     Route: 048
     Dates: start: 20090220, end: 20090326
  13. TASIGNA [Suspect]
     Active Substance: NILOTINIB
     Dosage: 200 MG, QD
     Route: 048
     Dates: start: 20090508, end: 20090722
  14. TASIGNA [Suspect]
     Active Substance: NILOTINIB
     Dosage: 200 MG, QD  FIVE TIMES A WEEK
     Route: 048
     Dates: start: 20111024
  15. ALDACTONE-A [Concomitant]
     Active Substance: SPIRONOLACTONE
     Indication: PRODUCT USED FOR UNKNOWN INDICATION
     Route: 048
     Dates: start: 20090220, end: 20090318
  16. CRAVIT [Concomitant]
     Active Substance: LEVOFLOXACIN
     Indication: PRODUCT USED FOR UNKNOWN INDICATION
     Route: 048
     Dates: start: 20090220, end: 20090402
  17. LUPRAC [Concomitant]
     Active Substance: TORSEMIDE
     Indication: PRODUCT USED FOR UNKNOWN INDICATION
     Route: 048
     Dates: start: 20090220, end: 20090318
  18. TASIGNA [Suspect]
     Active Substance: NILOTINIB
     Dosage: 200 MG FIVE TIMES A WEEK
     Route: 048
     Dates: start: 20100128
  19. TASIGNA [Suspect]
     Active Substance: NILOTINIB
     Dosage: 200 MG, THREE TIMES A WEEK
     Route: 048
     Dates: start: 20091212, end: 20100127
  20. RED BLOOD CELLS, CONCENTRATED [Concomitant]
     Active Substance: HUMAN RED BLOOD CELL
     Indication: PRODUCT USED FOR UNKNOWN INDICATION
     Dosage: 2 U, UNK
     Route: 065
     Dates: start: 20090610
  21. PLATELETS [Concomitant]
     Active Substance: HUMAN PLATELET, ALLOGENIC
     Indication: PRODUCT USED FOR UNKNOWN INDICATION
     Dosage: 10 U, UNK
     Route: 065
     Dates: start: 20090610, end: 20091225

REACTIONS (13)
  - Subdural haematoma [Recovered/Resolved]
  - Blood bilirubin increased [Recovering/Resolving]
  - Rash [Recovered/Resolved]
  - Purpura [Not Recovered/Not Resolved]
  - Platelet count decreased [Recovered/Resolved]
  - Blood glucose increased [Recovering/Resolving]
  - Platelet count decreased [Not Recovered/Not Resolved]
  - Rash pruritic [Recovered/Resolved]
  - Pruritus [Recovering/Resolving]
  - Monocyte percentage increased [Unknown]
  - Anaemia [Not Recovered/Not Resolved]
  - Malaise [Recovering/Resolving]
  - Blood bilirubin unconjugated increased [Recovering/Resolving]

NARRATIVE: CASE EVENT DATE: 20090225
